FAERS Safety Report 11075773 (Version 1)
Quarter: 2015Q2

REPORT INFORMATION
  Report Type: Report from Study
  Country: JP (occurrence: JP)
  Receive Date: 20150429
  Receipt Date: 20150429
  Transmission Date: 20150821
  Serious: Yes (Other)
  Sender: FDA-Public Use
  Company Number: JP-TEVA-558735USA

PATIENT

DRUGS (2)
  1. BENDAMUSTINE HYDROCHLORIDE [Suspect]
     Active Substance: BENDAMUSTINE HYDROCHLORIDE
     Indication: NON-HODGKIN^S LYMPHOMA
     Dosage: 90 MG/M2, CYCLIC FOR TWO CONSECUTIVE DAYS
     Route: 042
  2. RITUXIMAB [Suspect]
     Active Substance: RITUXIMAB
     Indication: NON-HODGKIN^S LYMPHOMA
     Dosage: 375 MG/M2, CYCLIC ON EITHER DAY 1, 2 OR 3, REPEATED EVERY 4 WEEKS
     Route: 065

REACTIONS (3)
  - Ileus [Unknown]
  - Enteritis [Unknown]
  - Prescribed underdose [Unknown]
